FAERS Safety Report 5475412-8 (Version None)
Quarter: 2007Q4

REPORT INFORMATION
  Report Type: 
  Country: None (occurrence: None)
  Receive Date: 20071003
  Receipt Date: 20070927
  Transmission Date: 20080405
  Serious: Yes (Other)
  Sender: FDA-Public Use
  Company Number: PHEH2007US12941

PATIENT
  Age: 93 Year
  Sex: Female

DRUGS (1)
  1. ENABLEX [Suspect]
     Dosage: 7.5 MG, QD
     Route: 048
     Dates: start: 20070906

REACTIONS (3)
  - DYSURIA [None]
  - NEPHROLITHIASIS [None]
  - URINE OUTPUT DECREASED [None]
